FAERS Safety Report 9028591 (Version 1)
Quarter: 2013Q1

REPORT INFORMATION
  Report Type: Spontaneous
  Country: LT (occurrence: LT)
  Receive Date: 20130124
  Receipt Date: 20130124
  Transmission Date: 20140127
  Serious: Yes (Hospitalization)
  Sender: FDA-Public Use
  Company Number: LT-GLAXOSMITHKLINE-B0861286A

PATIENT
  Age: 48 Year
  Sex: Male

DRUGS (4)
  1. TROBALT [Suspect]
     Indication: PARTIAL SEIZURES
     Dosage: 750MG PER DAY
     Route: 065
     Dates: start: 201208
  2. LAMICTAL [Concomitant]
     Indication: PARTIAL SEIZURES
     Dosage: 400MG PER DAY
  3. TRILEPTAL [Concomitant]
     Indication: PARTIAL SEIZURES
     Dosage: 1800MG PER DAY
  4. CLONAZEPAM [Concomitant]
     Indication: PARTIAL SEIZURES
     Dosage: 2MG PER DAY

REACTIONS (5)
  - Urinary retention [Recovered/Resolved]
  - Dry mouth [Recovered/Resolved]
  - Urinary hesitation [Unknown]
  - Epilepsy [Unknown]
  - Renal cyst [Unknown]
